FAERS Safety Report 9401578 (Version 2)
Quarter: 2013Q3

REPORT INFORMATION
  Report Type: Spontaneous
  Country: IT (occurrence: IT)
  Receive Date: 20130716
  Receipt Date: 20130913
  Transmission Date: 20140515
  Serious: Yes (Hospitalization)
  Sender: FDA-Public Use
  Company Number: IT-RANBAXY-2013R1-71005

PATIENT
  Age: 34 Year
  Sex: Female

DRUGS (2)
  1. SERTRALINE [Suspect]
     Indication: INTENTIONAL OVERDOSE
     Dosage: 1000MG, COMPLETE
     Route: 048
     Dates: start: 20130630, end: 20130630
  2. SEROQUEL [Suspect]
     Indication: INTENTIONAL OVERDOSE
     Dosage: 30 DOSAGE UNITS, COMPLETE
     Route: 048
     Dates: start: 20130630, end: 20130630

REACTIONS (1)
  - Psychomotor skills impaired [Recovered/Resolved]
